FAERS Safety Report 8341292-6 (Version None)
Quarter: 2012Q2

REPORT INFORMATION
  Report Type: 
  Country: None (occurrence: None)
  Receive Date: 20120507
  Receipt Date: 20100120
  Transmission Date: 20120825
  Serious: No
  Sender: FDA-Public Use
  Company Number: US-TEVA-2009019237

PATIENT
  Sex: Male
  Weight: 83.99 kg

DRUGS (8)
  1. RITUXAN [Suspect]
     Indication: CHRONIC LYMPHOCYTIC LEUKAEMIA
     Route: 042
  2. TREANDA [Suspect]
     Indication: CHRONIC LYMPHOCYTIC LEUKAEMIA
     Route: 042
     Dates: start: 20090716
  3. TREANDA [Suspect]
     Route: 042
  4. PROZAC [Concomitant]
  5. CARVEDILOL [Concomitant]
  6. PREDNISOLONE [Concomitant]
     Indication: CHRONIC LYMPHOCYTIC LEUKAEMIA
     Route: 048
  7. DIOVAN [Concomitant]
  8. DIGOXIN [Concomitant]

REACTIONS (3)
  - INFUSION SITE PHLEBITIS [None]
  - WHITE BLOOD CELL COUNT DECREASED [None]
  - CELLULITIS [None]
